FAERS Safety Report 5258627-3 (Version None)
Quarter: 2007Q1

REPORT INFORMATION
  Report Type: 
  Country: None (occurrence: None)
  Receive Date: 20070308
  Receipt Date: 20070307
  Transmission Date: 20070707
  Serious: Yes (Other)
  Sender: FDA-Public Use
  Company Number: CA-BRISTOL-MYERS SQUIBB COMPANY-13704192

PATIENT
  Age: 53 Year
  Sex: Female

DRUGS (3)
  1. AVAPRO [Suspect]
     Indication: HYPERTENSION
     Route: 048
     Dates: start: 20060701
  2. LORAZEPAM [Concomitant]
  3. LABETALOL HCL [Concomitant]

REACTIONS (1)
  - NEPHROLITHIASIS [None]
